FAERS Safety Report 5150463-1 (Version None)
Quarter: 2006Q4

REPORT INFORMATION
  Report Type: 
  Country: None (occurrence: None)
  Receive Date: 20061108
  Receipt Date: 20061025
  Transmission Date: 20070319
  Serious: Yes (Other)
  Sender: FDA-Public Use
  Company Number: 149284ISR

PATIENT
  Age: 39 Year
  Sex: Female

DRUGS (2)
  1. LEVOTHYROXINE SODIUM [Suspect]
     Dosage: (150 MCG), ORAL
     Route: 048
     Dates: start: 20030101
  2. RAMIPRIL [Suspect]
     Indication: HYPERTENSION
     Dosage: (5 MG), ORAL
     Route: 048
     Dates: start: 20060301

REACTIONS (3)
  - ARTHROPOD BITE [None]
  - SCAR [None]
  - SKIN REACTION [None]
